FAERS Safety Report 16930309 (Version 1)
Quarter: 2019Q4

REPORT INFORMATION
  Report Type: Spontaneous
  Country: US (occurrence: US)
  Receive Date: 20191017
  Receipt Date: 20191017
  Transmission Date: 20200122
  Serious: No
  Sender: FDA-Public Use
  Company Number: US-PFIZER INC-2019439065

PATIENT
  Age: 42 Year
  Sex: Female
  Weight: 11 kg

DRUGS (5)
  1. NEURONTIN [Suspect]
     Active Substance: GABAPENTIN
     Dosage: 600 MG, 2X/DAY
     Dates: start: 201909, end: 201909
  2. NEURONTIN [Suspect]
     Active Substance: GABAPENTIN
     Indication: BACK PAIN
     Dosage: 300 MG, DAILY
     Dates: start: 20190929, end: 201909
  3. NEURONTIN [Suspect]
     Active Substance: GABAPENTIN
     Dosage: 900 MG, 2X/DAY
     Dates: start: 201909, end: 201909
  4. NEURONTIN [Suspect]
     Active Substance: GABAPENTIN
     Dosage: 900 MG, DAILY
     Dates: start: 201909, end: 201909
  5. NEURONTIN [Suspect]
     Active Substance: GABAPENTIN
     Dosage: 1200 MG, UNK
     Dates: start: 20191006

REACTIONS (5)
  - Off label use [Unknown]
  - Therapeutic response unexpected [Unknown]
  - Pre-existing condition improved [Unknown]
  - Intentional product use issue [Unknown]
  - Product use in unapproved indication [Unknown]

NARRATIVE: CASE EVENT DATE: 201909
